FAERS Safety Report 16219430 (Version 1)
Quarter: 2019Q2

REPORT INFORMATION
  Report Type: Spontaneous
  Country: US (occurrence: US)
  Receive Date: 20190420
  Receipt Date: 20190420
  Transmission Date: 20190711
  Serious: No
  Sender: FDA-Public Use
  Company Number: US-JNJFOC-20190333079

PATIENT
  Sex: Female
  Weight: 104.33 kg

DRUGS (1)
  1. TYLENOL EXTRA STRENGTH [Suspect]
     Active Substance: ACETAMINOPHEN
     Indication: BACK PAIN
     Dosage: ONE PILL EACH TIME FOR ONLY ABOUT 4 PER MONTH
     Route: 048

REACTIONS (2)
  - Incorrect dose administered [Unknown]
  - Expired product administered [Unknown]
